FAERS Safety Report 9204416 (Version 2)
Quarter: 2013Q3

REPORT INFORMATION
  Report Type: Spontaneous
  Country: US (occurrence: None)
  Receive Date: 20120709
  Receipt Date: 20130724
  Transmission Date: 20140515
  Serious: Yes (Other)
  Sender: FDA-Public Use
  Company Number: PHEH2011US02790

PATIENT
  Age: 75 Year
  Sex: Female

DRUGS (1)
  1. GLEEVEC [Suspect]
     Indication: GASTRIC CANCER
     Route: 048
     Dates: start: 20110808

REACTIONS (12)
  - Anaemia [None]
  - Wound [None]
  - Pain [None]
  - Generalised oedema [None]
  - Rash [None]
  - Diarrhoea [None]
  - Periorbital oedema [None]
  - Alopecia [None]
  - Pruritus [None]
  - Contusion [None]
  - Fluid retention [None]
  - Full blood count decreased [None]
